FAERS Safety Report 22654789 (Version 1)
Quarter: 2023Q2

REPORT INFORMATION
  Report Type: Spontaneous
  Country: US (occurrence: None)
  Receive Date: 20230628
  Receipt Date: 20230628
  Transmission Date: 20230722
  Serious: Yes (Death)
  Sender: FDA-Public Use
  Company Number: None

PATIENT
  Age: 49 Year
  Sex: Male

DRUGS (8)
  1. LOKELMA [Suspect]
     Active Substance: SODIUM ZIRCONIUM CYCLOSILICATE
     Indication: Hyperkalaemia
     Dosage: FREQUENCY : DAILY;?
     Route: 048
     Dates: start: 20200313
  2. AMLODIPINE BESYLATE [Concomitant]
     Active Substance: AMLODIPINE BESYLATE
  3. ASPIRIN [Concomitant]
     Active Substance: ASPIRIN
  4. CARVEDILOL [Concomitant]
     Active Substance: CARVEDILOL
  5. CHLORTHALIDONE [Concomitant]
     Active Substance: CHLORTHALIDONE
  6. LANTUS SOLOSTAR [Concomitant]
  7. NOVOLOG FLEXPEN [Concomitant]
  8. PAROXETINE [Concomitant]

REACTIONS (1)
  - Death [None]
